FAERS Safety Report 5634170-4 (Version None)
Quarter: 2008Q1

REPORT INFORMATION
  Report Type: 
  Country: None (occurrence: None)
  Receive Date: 20080219
  Receipt Date: 20080212
  Transmission Date: 20080703
  Serious: Yes (Hospitalization)
  Sender: FDA-Public Use
  Company Number: 2008SP002834

PATIENT
  Age: 6 Year
  Sex: Male
  Weight: 23 kg

DRUGS (1)
  1. DESLORATADINE [Suspect]
     Indication: VARICELLA
     Dosage: 5 ML; BID; PO
     Route: 048
     Dates: start: 20080103, end: 20080104

REACTIONS (2)
  - DYSKINESIA [None]
  - PYREXIA [None]
